FAERS Safety Report 22058553 (Version 1)
Quarter: 2023Q1

REPORT INFORMATION
  Report Type: Spontaneous
  Country: US (occurrence: US)
  Receive Date: 20230303
  Receipt Date: 20230303
  Transmission Date: 20230418
  Serious: Yes (Hospitalization)
  Sender: FDA-Public Use
  Company Number: US-002147023-NVSC2023US044552

PATIENT
  Age: 59 Year
  Sex: Male

DRUGS (5)
  1. EVEROLIMUS [Suspect]
     Active Substance: EVEROLIMUS
     Indication: Product used for unknown indication
     Dosage: UNK
     Route: 065
     Dates: start: 2022
  2. LENVIMA [Suspect]
     Active Substance: LENVATINIB
     Indication: Renal cancer
     Dosage: 14 MG, QD  MISSED 2 DAYS OF MEDICATION
     Route: 048
     Dates: start: 20221007, end: 202211
  3. LENVIMA [Suspect]
     Active Substance: LENVATINIB
     Dosage: 14 MG, QD  MISSED 2 DAYS OF MEDICATION
     Route: 048
     Dates: start: 20221210, end: 20221213
  4. LENVIMA [Suspect]
     Active Substance: LENVATINIB
     Dosage: 14 MG, QD
     Route: 048
     Dates: start: 202212
  5. LENVIMA [Suspect]
     Active Substance: LENVATINIB
     Dosage: 14 MG, QD
     Route: 048

REACTIONS (23)
  - Dehydration [Unknown]
  - Headache [Unknown]
  - Acne [Unknown]
  - Tooth disorder [Unknown]
  - Abdominal pain upper [Unknown]
  - Rash [Unknown]
  - Skin exfoliation [Unknown]
  - Arthralgia [Unknown]
  - Gait disturbance [Unknown]
  - Pain [Unknown]
  - Bone pain [Unknown]
  - Pain in jaw [Unknown]
  - Vomiting [Unknown]
  - Decreased appetite [Unknown]
  - Weight decreased [Unknown]
  - Toxicity to various agents [Unknown]
  - Nausea [Unknown]
  - Myalgia [Unknown]
  - Pruritus [Unknown]
  - Chest pain [Unknown]
  - Gingival bleeding [Unknown]
  - Infection [Unknown]
  - Fatigue [Unknown]

NARRATIVE: CASE EVENT DATE: 20220101
